FAERS Safety Report 11910315 (Version 1)
Quarter: 2016Q1

REPORT INFORMATION
  Report Type: Spontaneous
  Country: US (occurrence: US)
  Receive Date: 20160112
  Receipt Date: 20160112
  Transmission Date: 20160526
  Serious: No
  Sender: FDA-Public Use
  Company Number: US-BAYER-2016-005421

PATIENT
  Age: 82 Year
  Sex: Female
  Weight: 48.98 kg

DRUGS (7)
  1. IPRATROPIUM BROMIDE. [Concomitant]
     Active Substance: IPRATROPIUM BROMIDE
     Dosage: UNK
     Dates: start: 2015
  2. VITAMIN C [Concomitant]
     Active Substance: ASCORBIC ACID
  3. CICLESONIDE [Concomitant]
     Active Substance: CICLESONIDE
     Dosage: UNK
     Dates: start: 2015
  4. SYNTHROID [Concomitant]
     Active Substance: LEVOTHYROXINE SODIUM
  5. LISINOPRIL. [Concomitant]
     Active Substance: LISINOPRIL
  6. CLARITIN [Suspect]
     Active Substance: LORATADINE
     Indication: RHINORRHOEA
     Dosage: 1 DF, QD (ONCE DAILY WITH FOOD)
     Route: 048
     Dates: start: 20160107, end: 20160108
  7. VITAMIN D [Concomitant]
     Active Substance: CHOLECALCIFEROL

REACTIONS (3)
  - Drug ineffective for unapproved indication [None]
  - Dizziness [Not Recovered/Not Resolved]
  - Product use issue [None]

NARRATIVE: CASE EVENT DATE: 20160107
